FAERS Safety Report 18433872 (Version 3)
Quarter: 2020Q4

REPORT INFORMATION
  Report Type: Report from Study
  Country: CA (occurrence: CA)
  Receive Date: 20201027
  Receipt Date: 20201112
  Transmission Date: 20210114
  Serious: Yes (Other)
  Sender: FDA-Public Use
  Company Number: CA-SHIRE-CA202030468AA

PATIENT

DRUGS (12)
  1. PEGYLATED COAGULATION FACTOR VIII [Suspect]
     Active Substance: ANTIHEMOPHILIC FACTOR, PEGYLATED (MW 20000) HUMAN SEQUENCE RECOMBINANT
     Dosage: 4000 MILLIGRAM, 2/WEEK (MONDAY/ FRIDAY)
     Route: 065
     Dates: start: 20200904
  2. PEGYLATED COAGULATION FACTOR VIII [Suspect]
     Active Substance: ANTIHEMOPHILIC FACTOR, PEGYLATED (MW 20000) HUMAN SEQUENCE RECOMBINANT
     Dosage: 4000 MILLIGRAM, 2/WEEK (MONDAY/ FRIDAY)
     Route: 065
     Dates: start: 20200904
  3. PEGYLATED COAGULATION FACTOR VIII [Suspect]
     Active Substance: ANTIHEMOPHILIC FACTOR, PEGYLATED (MW 20000) HUMAN SEQUENCE RECOMBINANT
     Dosage: 4000 MILLIGRAM, 2/WEEK (MONDAY/ FRIDAY)
     Route: 065
     Dates: start: 20200904
  4. PEGYLATED COAGULATION FACTOR VIII [Suspect]
     Active Substance: ANTIHEMOPHILIC FACTOR, PEGYLATED (MW 20000) HUMAN SEQUENCE RECOMBINANT
     Dosage: 4000 MILLIGRAM, 2/WEEK (MONDAY/ FRIDAY)
     Route: 065
     Dates: start: 20200904
  5. PEGYLATED COAGULATION FACTOR VIII [Suspect]
     Active Substance: ANTIHEMOPHILIC FACTOR, PEGYLATED (MW 20000) HUMAN SEQUENCE RECOMBINANT
     Dosage: 4000 MILLIGRAM, 2/WEEK (MONDAY/ FRIDAY)
     Route: 065
     Dates: start: 20200904
  6. PEGYLATED COAGULATION FACTOR VIII [Suspect]
     Active Substance: ANTIHEMOPHILIC FACTOR, PEGYLATED (MW 20000) HUMAN SEQUENCE RECOMBINANT
     Indication: FACTOR VIII DEFICIENCY
     Dosage: 4000 INTERNATIONAL UNIT, 1X/2WKS
     Route: 065
     Dates: start: 20200904
  7. PEGYLATED COAGULATION FACTOR VIII [Suspect]
     Active Substance: ANTIHEMOPHILIC FACTOR, PEGYLATED (MW 20000) HUMAN SEQUENCE RECOMBINANT
     Indication: FACTOR VIII DEFICIENCY
     Dosage: 4000 INTERNATIONAL UNIT, 1X/2WKS
     Route: 065
     Dates: start: 20200904
  8. PEGYLATED COAGULATION FACTOR VIII [Suspect]
     Active Substance: ANTIHEMOPHILIC FACTOR, PEGYLATED (MW 20000) HUMAN SEQUENCE RECOMBINANT
     Dosage: 4000 MILLIGRAM, 2/WEEK (MONDAY/ FRIDAY)
     Route: 065
     Dates: start: 20200904
  9. PEGYLATED COAGULATION FACTOR VIII [Suspect]
     Active Substance: ANTIHEMOPHILIC FACTOR, PEGYLATED (MW 20000) HUMAN SEQUENCE RECOMBINANT
     Indication: FACTOR VIII DEFICIENCY
     Dosage: 4000 INTERNATIONAL UNIT, 1X/2WKS
     Route: 065
     Dates: start: 20200904
  10. PEGYLATED COAGULATION FACTOR VIII [Suspect]
     Active Substance: ANTIHEMOPHILIC FACTOR, PEGYLATED (MW 20000) HUMAN SEQUENCE RECOMBINANT
     Dosage: 4000 MILLIGRAM, 2/WEEK (MONDAY/ FRIDAY)
     Route: 065
     Dates: start: 20200904
  11. PEGYLATED COAGULATION FACTOR VIII [Suspect]
     Active Substance: ANTIHEMOPHILIC FACTOR, PEGYLATED (MW 20000) HUMAN SEQUENCE RECOMBINANT
     Dosage: 4000 MILLIGRAM, 2/WEEK (MONDAY/ FRIDAY)
     Route: 065
     Dates: start: 20200904
  12. PEGYLATED COAGULATION FACTOR VIII [Suspect]
     Active Substance: ANTIHEMOPHILIC FACTOR, PEGYLATED (MW 20000) HUMAN SEQUENCE RECOMBINANT
     Dosage: 4000 MILLIGRAM, 2/WEEK (MONDAY/ FRIDAY)
     Route: 065
     Dates: start: 20200904

REACTIONS (10)
  - Contusion [Unknown]
  - Poor venous access [Unknown]
  - Dehydration [Not Recovered/Not Resolved]
  - Injury [Unknown]
  - Product dose omission issue [Recovered/Resolved]
  - Swelling [Unknown]
  - Fall [Unknown]
  - Incorrect dose administered [Not Recovered/Not Resolved]
  - Haemorrhage [Unknown]
  - Fatigue [Not Recovered/Not Resolved]

NARRATIVE: CASE EVENT DATE: 20200914
